FAERS Safety Report 8985002 (Version 1)
Quarter: 2012Q4

REPORT INFORMATION
  Report Type: 
  Country: TR (occurrence: TR)
  Receive Date: 20121225
  Receipt Date: 20121225
  Transmission Date: 20130627
  Serious: Yes (Life-Threatening, Hospitalization, Other)
  Sender: FDA-Public Use
  Company Number: TR-AMGEN-TURSP2012037241

PATIENT
  Age: 48 Year
  Sex: Female

DRUGS (3)
  1. ENBREL [Suspect]
     Indication: ANKYLOSING SPONDYLITIS
     Dosage: 25 mg, twice a week
     Route: 058
     Dates: start: 20090209, end: 201209
  2. DUROGESIC [Concomitant]
     Indication: PAIN
     Dosage: 1 DF, per day, as needed
     Route: 062
  3. TRAMADOL [Concomitant]
     Indication: PAIN
     Dosage: 2 DF, 1x/day

REACTIONS (5)
  - Pneumonia aspiration [Recovered/Resolved]
  - Dysphagia [Unknown]
  - Hemiplegia [Not Recovered/Not Resolved]
  - Back pain [Not Recovered/Not Resolved]
  - Drug ineffective [Not Recovered/Not Resolved]
